FAERS Safety Report 8376138-3 (Version None)
Quarter: 2012Q2

REPORT INFORMATION
  Report Type: 
  Country: None (occurrence: None)
  Receive Date: 20120522
  Receipt Date: 20120518
  Transmission Date: 20120825
  Serious: Yes (Other)
  Sender: FDA-Public Use
  Company Number: PHFR2012GB001859

PATIENT
  Sex: Male

DRUGS (3)
  1. OXYNORM [Concomitant]
  2. OXYMORPH [Concomitant]
  3. ZOMETA [Suspect]
     Indication: PROSTATE CANCER
     Route: 042
     Dates: start: 20110301, end: 20120201

REACTIONS (3)
  - BONE LESION [None]
  - EXPOSED BONE IN JAW [None]
  - OSTEONECROSIS OF JAW [None]
